FAERS Safety Report 16306511 (Version 2)
Quarter: 2019Q2

REPORT INFORMATION
  Report Type: Spontaneous
  Country: BG (occurrence: BG)
  Receive Date: 20190513
  Receipt Date: 20190528
  Transmission Date: 20190711
  Serious: Yes (Life-Threatening, Other)
  Sender: FDA-Public Use
  Company Number: BG-MYLANLABS-2019M1044564

PATIENT
  Age: 38 Year
  Sex: Male

DRUGS (1)
  1. OXALIPLATIN. [Suspect]
     Active Substance: OXALIPLATIN
     Indication: COLON CANCER
     Dosage: UNK
     Route: 065

REACTIONS (8)
  - Metastases to lung [Unknown]
  - Sarcoidosis [Recovered/Resolved]
  - Actinomycotic pulmonary infection [Unknown]
  - Skin lesion [Unknown]
  - Tuberculosis [Unknown]
  - Pneumoconiosis [Unknown]
  - Pulmonary sarcoidosis [Unknown]
  - Lymphangiosis carcinomatosa [Unknown]
